FAERS Safety Report 23841306 (Version 1)
Quarter: 2024Q2

REPORT INFORMATION
  Report Type: Spontaneous
  Country: US (occurrence: US)
  Receive Date: 20240510
  Receipt Date: 20240510
  Transmission Date: 20240716
  Serious: No
  Sender: FDA-Public Use
  Company Number: US-BRISTOL-MYERS SQUIBB COMPANY-2024-072869

PATIENT
  Age: 73 Year
  Sex: Female

DRUGS (1)
  1. ABRAXANE [Suspect]
     Active Substance: PACLITAXEL
     Indication: Bladder cancer
     Dosage: VIALS; FREQUENCY: DAY 1, 8, 15, EVERY 28 DAYS
     Route: 042
     Dates: end: 2023

REACTIONS (1)
  - Off label use [Unknown]
